FAERS Safety Report 4729819-4 (Version None)
Quarter: 2005Q3

REPORT INFORMATION
  Report Type: 
  Country: None (occurrence: None)
  Receive Date: 20050801
  Receipt Date: 20050322
  Transmission Date: 20060218
  Serious: Yes (Hospitalization, Other)
  Sender: FDA-Public Use
  Company Number: US-MERCK-0503USA04217

PATIENT
  Age: 67 Year
  Sex: Female
  Weight: 92 kg

DRUGS (9)
  1. VIOXX [Suspect]
     Indication: OSTEOARTHRITIS
     Route: 048
     Dates: start: 20001201, end: 20030701
  2. VIOXX [Suspect]
     Route: 048
     Dates: start: 20030701, end: 20040301
  3. ADVIL [Concomitant]
     Route: 065
  4. ALEVE [Concomitant]
     Route: 065
  5. MOBIC [Concomitant]
     Route: 065
     Dates: start: 19940226
  6. TYLENOL (CAPLET) [Concomitant]
     Route: 065
     Dates: start: 20000101, end: 20040101
  7. LORTAB [Suspect]
     Route: 065
     Dates: start: 20000101, end: 20040101
  8. FLEXERIL [Suspect]
     Indication: SLEEP DISORDER
     Route: 048
     Dates: start: 20001201
  9. NAPROXEN [Suspect]
     Route: 065
     Dates: start: 20000101, end: 20040101

REACTIONS (43)
  - ACUTE MYOCARDIAL INFARCTION [None]
  - ANGINA PECTORIS [None]
  - ARTHRALGIA [None]
  - BACK PAIN [None]
  - BLOOD PRESSURE INCREASED [None]
  - CAROTID ARTERY OCCLUSION [None]
  - CAROTID ARTERY STENOSIS [None]
  - CARPAL TUNNEL SYNDROME [None]
  - CHRONIC OBSTRUCTIVE PULMONARY DISEASE [None]
  - CONSTIPATION [None]
  - CORONARY ARTERY DISEASE [None]
  - DEPRESSION [None]
  - DIZZINESS [None]
  - DRUG INEFFECTIVE [None]
  - DRY EYE [None]
  - DRY SKIN [None]
  - DYSLIPIDAEMIA [None]
  - DYSPEPSIA [None]
  - DYSURIA [None]
  - EAR DISORDER [None]
  - ELECTROCARDIOGRAM ST-T SEGMENT ABNORMAL [None]
  - ERUCTATION [None]
  - FATIGUE [None]
  - GASTROOESOPHAGEAL REFLUX DISEASE [None]
  - HYPOACUSIS [None]
  - INCREASED TENDENCY TO BRUISE [None]
  - INSOMNIA [None]
  - MEDICATION ERROR [None]
  - MEMORY IMPAIRMENT [None]
  - MUSCULOSKELETAL STIFFNESS [None]
  - MYOCARDIAL ISCHAEMIA [None]
  - NAUSEA [None]
  - NECK PAIN [None]
  - NOCTURIA [None]
  - OEDEMA PERIPHERAL [None]
  - PAIN IN EXTREMITY [None]
  - POLYURIA [None]
  - SINUS CONGESTION [None]
  - TENSION [None]
  - TRANSIENT ISCHAEMIC ATTACK [None]
  - VERTIGO [None]
  - VOMITING [None]
  - XANTHELASMA [None]
